FAERS Safety Report 18819528 (Version 1)
Quarter: 2021Q1

REPORT INFORMATION
  Report Type: Spontaneous
  Country: UA (occurrence: UA)
  Receive Date: 20210201
  Receipt Date: 20210201
  Transmission Date: 20210419
  Serious: Yes (Other)
  Sender: FDA-Public Use
  Company Number: NVSC2020UA348831

PATIENT

DRUGS (2)
  1. DICLOFENAC [Suspect]
     Active Substance: DICLOFENAC
     Indication: PAIN
     Dosage: 3 ML
     Route: 030
  2. MELOXICAM. [Suspect]
     Active Substance: MELOXICAM
     Indication: PAIN
     Dosage: 7.5 MG, BID (PER OS)
     Route: 065

REACTIONS (8)
  - Abdominal pain upper [Unknown]
  - Dyspepsia [Unknown]
  - Gastritis erosive [Unknown]
  - Duodenal ulcer [Unknown]
  - Intestinal metaplasia [Unknown]
  - Gastrointestinal haemorrhage [Unknown]
  - Portal hypertensive gastropathy [Unknown]
  - Helicobacter gastritis [Unknown]
